FAERS Safety Report 9425363 (Version 2)
Quarter: 2013Q3

REPORT INFORMATION
  Report Type: Spontaneous
  Country: None (occurrence: US)
  Receive Date: 20130729
  Receipt Date: 20130811
  Transmission Date: 20140515
  Serious: No
  Sender: FDA-Public Use
  Company Number: US-TEVA-421557USA

PATIENT
  Age: 67 Year
  Sex: Female
  Weight: 58.57 kg

DRUGS (5)
  1. AZILECT [Suspect]
     Indication: PARKINSON^S DISEASE
     Route: 048
     Dates: start: 20130716
  2. AZILECT [Suspect]
     Route: 048
  3. AZILECT [Suspect]
     Route: 048
  4. MIRAPEX [Concomitant]
  5. CARBIDOPA [Concomitant]

REACTIONS (5)
  - Feeling jittery [Recovered/Resolved]
  - Nervousness [Recovered/Resolved]
  - Tremor [Recovered/Resolved]
  - Nervousness [Recovered/Resolved]
  - Feeling abnormal [Recovered/Resolved]
